FAERS Safety Report 24917101 (Version 1)
Quarter: 2025Q1

REPORT INFORMATION
  Report Type: Spontaneous
  Country: DE (occurrence: DE)
  Receive Date: 20250203
  Receipt Date: 20250203
  Transmission Date: 20250409
  Serious: Yes (Other)
  Sender: EMD SERONO INC
  Company Number: DE-Merck Healthcare KGaA-2025004183

PATIENT
  Age: 28 Year
  Sex: Female

DRUGS (1)
  1. GONAL-F [Suspect]
     Active Substance: FOLLITROPIN
     Indication: Product used for unknown indication
     Dates: start: 20250118, end: 20250120

REACTIONS (7)
  - Drug intolerance [Unknown]
  - Dysphagia [Not Recovered/Not Resolved]
  - Erythema [Not Recovered/Not Resolved]
  - Flushing [Not Recovered/Not Resolved]
  - Throat tightness [Not Recovered/Not Resolved]
  - Swelling face [Not Recovered/Not Resolved]
  - Rash [Not Recovered/Not Resolved]

NARRATIVE: CASE EVENT DATE: 20250119
